FAERS Safety Report 9790232 (Version 4)
Quarter: 2014Q3

REPORT INFORMATION
  Report Type: Spontaneous
  Country: US (occurrence: US)
  Receive Date: 20131231
  Receipt Date: 20140703
  Transmission Date: 20150326
  Serious: Yes (Hospitalization, Other)
  Sender: FDA-Public Use
  Company Number: US-009507513-2011SP016569

PATIENT
  Sex: Female
  Weight: 77.11 kg

DRUGS (1)
  1. NUVARING [Suspect]
     Active Substance: ETHINYL ESTRADIOL\ETONOGESTREL
     Indication: CONTRACEPTION
     Route: 067
     Dates: start: 20090222, end: 20091001

REACTIONS (7)
  - Hypercoagulation [Unknown]
  - Tendonitis [Unknown]
  - Thrombophlebitis [Unknown]
  - Bacterial vaginosis [Unknown]
  - Pulmonary embolism [Recovered/Resolved]
  - Antiphospholipid antibodies [Unknown]
  - Pulmonary mass [Unknown]

NARRATIVE: CASE EVENT DATE: 200903
